FAERS Safety Report 8963328 (Version 1)
Quarter: 2012Q4

REPORT INFORMATION
  Report Type: 
  Country: BR (occurrence: BR)
  Receive Date: 20121214
  Receipt Date: 20121214
  Transmission Date: 20130627
  Serious: No
  Sender: FDA-Public Use
  Company Number: BR-JNJFOC-20121200645

PATIENT
  Age: 58 Year
  Sex: Female

DRUGS (3)
  1. DUROGESIC D-TRANS [Suspect]
     Indication: BACK PAIN
     Route: 062
     Dates: start: 20121124
  2. PAROXETINE [Concomitant]
     Indication: DEPRESSION
     Route: 065
  3. RIVOTRIL [Concomitant]
     Indication: SEDATIVE THERAPY
     Route: 065

REACTIONS (2)
  - Drug prescribing error [Not Recovered/Not Resolved]
  - Wrong technique in drug usage process [Not Recovered/Not Resolved]
